FAERS Safety Report 13366157 (Version 1)
Quarter: 2017Q1

REPORT INFORMATION
  Report Type: Spontaneous
  Country: US (occurrence: US)
  Receive Date: 20170323
  Receipt Date: 20170323
  Transmission Date: 20170429
  Serious: No
  Sender: FDA-Public Use
  Company Number: US-ELI_LILLY_AND_COMPANY-US201608004367

PATIENT
  Sex: Female

DRUGS (3)
  1. CYMBALTA [Suspect]
     Active Substance: DULOXETINE HYDROCHLORIDE
     Dosage: 30 MG, QD
  2. CYMBALTA [Suspect]
     Active Substance: DULOXETINE HYDROCHLORIDE
     Dosage: 30 MG, OTHER
  3. CYMBALTA [Suspect]
     Active Substance: DULOXETINE HYDROCHLORIDE
     Indication: DEPRESSION
     Dosage: UNK, UNKNOWN
     Route: 065
     Dates: start: 200909

REACTIONS (25)
  - Palpitations [Unknown]
  - Malaise [Unknown]
  - Lethargy [Unknown]
  - Disturbance in attention [Recovered/Resolved]
  - Confusional state [Unknown]
  - Affect lability [Unknown]
  - Vertigo [Recovered/Resolved]
  - Paraesthesia [Unknown]
  - Depression [Unknown]
  - Headache [Recovered/Resolved]
  - Vomiting [Unknown]
  - Irritability [Recovered/Resolved]
  - Insomnia [Unknown]
  - Dizziness [Unknown]
  - Nausea [Unknown]
  - Diarrhoea [Unknown]
  - Anxiety [Unknown]
  - Anger [Recovered/Resolved]
  - Dysphoria [Unknown]
  - Drug withdrawal syndrome [Unknown]
  - Hyperhidrosis [Unknown]
  - Tachycardia [Unknown]
  - Tinnitus [Unknown]
  - Feeling abnormal [Recovered/Resolved]
  - Agitation [Unknown]
